FAERS Safety Report 17023700 (Version 1)
Quarter: 2019Q4

REPORT INFORMATION
  Report Type: Spontaneous
  Country: IT (occurrence: IT)
  Receive Date: 20191113
  Receipt Date: 20191113
  Transmission Date: 20200122
  Serious: Yes (Hospitalization)
  Sender: FDA-Public Use
  Company Number: IT-SUN PHARMACEUTICAL INDUSTRIES LTD-2019RR-227295

PATIENT
  Age: 53 Year
  Sex: Female

DRUGS (2)
  1. GABAPENTIN. [Suspect]
     Active Substance: GABAPENTIN
     Indication: BIPOLAR DISORDER
     Dosage: 300 MILLIGRAM, DAILY
     Route: 048
  2. CYMBALTA [Suspect]
     Active Substance: DULOXETINE HYDROCHLORIDE
     Indication: BIPOLAR DISORDER
     Dosage: 120 MILLIGRAM, DAILY
     Route: 048

REACTIONS (3)
  - Tachycardia [Recovering/Resolving]
  - Asthenia [Recovering/Resolving]
  - Malaise [Recovering/Resolving]

NARRATIVE: CASE EVENT DATE: 20190618
